FAERS Safety Report 24162517 (Version 3)
Quarter: 2024Q4

REPORT INFORMATION
  Report Type: Spontaneous
  Country: BR (occurrence: BR)
  Receive Date: 20240801
  Receipt Date: 20241105
  Transmission Date: 20250114
  Serious: No
  Sender: PFIZER
  Company Number: BR-PFIZER INC-PV202400098622

PATIENT
  Age: 10 Year
  Sex: Female

DRUGS (1)
  1. SOMATROGON [Suspect]
     Active Substance: SOMATROGON
     Dosage: UNK
     Dates: start: 20240718

REACTIONS (1)
  - Application site pain [Unknown]
